FAERS Safety Report 9960028 (Version 1)
Quarter: 2014Q1

REPORT INFORMATION
  Report Type: Spontaneous
  Country: US (occurrence: None)
  Receive Date: 20140228
  Receipt Date: 20140228
  Transmission Date: 20141002
  Serious: Yes (Other)
  Sender: FDA-Public Use
  Company Number: 2014-US-002111

PATIENT
  Age: 59 Year
  Sex: Male

DRUGS (6)
  1. XYREM (SODIUM OXYBATE) ORAL SOLUTION, 500MG/ML [Suspect]
     Indication: NARCOLEPSY
     Route: 048
     Dates: start: 200808
  2. XYREM (SODIUM OXYBATE) ORAL SOLUTION, 500MG/ML [Suspect]
     Indication: CATAPLEXY
     Route: 048
     Dates: start: 200808
  3. ADDERALL (AMFETAMINE ASPARTATE, AMFETAMINE SULFATE, DEXAMFETAMINE SACCHARATE, DEXAMFETAMINE SULFATE) [Suspect]
     Indication: ASTHENIA
     Route: 048
  4. TRAZODONE (TRAZODONE HYDROCHLORIDE) [Suspect]
     Indication: PRODUCT USED FOR UNKNOWN INDICATION
  5. AMBIEN (ZOLPIDEM TARTRATE) [Suspect]
     Indication: PRODUCT USED FOR UNKNOWN INDICATION
  6. ELAVIL (AMITRIPTYLINE HYDROCHLORIDE) [Suspect]
     Indication: PRODUCT USED FOR UNKNOWN INDICATION

REACTIONS (9)
  - Drug dependence [None]
  - Asthenia [None]
  - Drug ineffective [None]
  - Chronic fatigue syndrome [None]
  - Fibromyalgia [None]
  - Attention deficit/hyperactivity disorder [None]
  - Depressed mood [None]
  - Somnolence [None]
  - Drug withdrawal syndrome [None]
